FAERS Safety Report 6644884-5 (Version None)
Quarter: 2010Q1

REPORT INFORMATION
  Report Type: 
  Country: None (occurrence: None)
  Receive Date: 20100322
  Receipt Date: 20100312
  Transmission Date: 20100710
  Serious: Yes (Other)
  Sender: FDA-Public Use
  Company Number: US-SANOFI-AVENTIS-2010SA015211

PATIENT
  Age: 72 Year
  Sex: Male

DRUGS (12)
  1. ELIGARD [Suspect]
     Indication: RADICAL PROSTATECTOMY
     Route: 058
     Dates: start: 20080911, end: 20080911
  2. ELIGARD [Suspect]
     Route: 058
     Dates: start: 20080911, end: 20080911
  3. ELIGARD [Suspect]
     Route: 058
     Dates: start: 20090312, end: 20090312
  4. ELIGARD [Suspect]
     Route: 058
     Dates: start: 20090312, end: 20090312
  5. ELIGARD [Suspect]
     Route: 058
     Dates: start: 20090909, end: 20090909
  6. ELIGARD [Suspect]
     Route: 058
     Dates: start: 20090909, end: 20090909
  7. TIOTROPIUM BROMIDE [Concomitant]
  8. FLEXERIL [Concomitant]
  9. FELDENE [Concomitant]
  10. VICODIN [Concomitant]
  11. PROVENTIL [Concomitant]
  12. LOTREL [Concomitant]

REACTIONS (3)
  - BACK PAIN [None]
  - COMPRESSION FRACTURE [None]
  - OSTEOPOROSIS [None]
